FAERS Safety Report 8852745 (Version 2)
Quarter: 2012Q4

REPORT INFORMATION
  Report Type: 
  Country: US (occurrence: US)
  Receive Date: 20121022
  Receipt Date: 20121101
  Transmission Date: 20130627
  Serious: Yes (Other)
  Sender: FDA-Public Use
  Company Number: US-ASTRAZENECA-2012SE78897

PATIENT
  Age: 90 Year
  Sex: Female

DRUGS (14)
  1. ENTOCORT EC [Suspect]
     Indication: COLITIS MICROSCOPIC
     Dosage: THREE TIMES A DAY
     Route: 048
     Dates: start: 20110502, end: 20110620
  2. ENTOCORT EC [Suspect]
     Indication: COLITIS MICROSCOPIC
     Dosage: TWO TIMES A DAY
     Route: 048
     Dates: start: 20110620, end: 20121008
  3. ENTOCORT EC [Suspect]
     Indication: COLITIS MICROSCOPIC
     Dosage: DAILY
     Route: 048
     Dates: start: 20121008
  4. ENTOCORT EC [Suspect]
     Indication: COLITIS MICROSCOPIC
     Route: 048
     Dates: start: 20110502, end: 20110620
  5. ENTOCORT EC [Suspect]
     Indication: COLITIS MICROSCOPIC
     Route: 048
     Dates: start: 20110620, end: 20121008
  6. ENTOCORT EC [Suspect]
     Indication: COLITIS MICROSCOPIC
     Route: 048
     Dates: start: 20121008
  7. PRILOSEC [Suspect]
     Indication: GASTROOESOPHAGEAL REFLUX DISEASE
     Route: 048
  8. POTASSIUM [Concomitant]
     Indication: MINERAL SUPPLEMENTATION
     Route: 048
  9. ESCITALOPRAM [Concomitant]
     Indication: DEPRESSION
     Route: 048
  10. LORAZEPAM [Concomitant]
     Indication: DEPRESSION
     Route: 048
  11. TEMAZEPAM [Concomitant]
     Indication: SLEEP DISORDER
     Route: 048
  12. LEVOTHYROXINE [Concomitant]
     Indication: THYROID DISORDER
     Route: 048
  13. LABETALOL [Concomitant]
     Indication: BLOOD PRESSURE ABNORMAL
     Route: 048
  14. SERTRALINE [Concomitant]
     Indication: ANXIETY
     Route: 048

REACTIONS (2)
  - Myopathy [Unknown]
  - Amnesia [Unknown]
